FAERS Safety Report 8337726-3 (Version None)
Quarter: 2012Q2

REPORT INFORMATION
  Report Type: 
  Country: None (occurrence: None)
  Receive Date: 20120504
  Receipt Date: 20120503
  Transmission Date: 20120825
  Serious: Yes (Other)
  Sender: FDA-Public Use
  Company Number: US-FRI-1000029252

PATIENT
  Age: 85 Year
  Sex: Male

DRUGS (6)
  1. FLOMAX [Concomitant]
  2. FEXOFENADINE [Concomitant]
     Indication: SEASONAL ALLERGY
  3. BYSTOLIC [Suspect]
     Dosage: 2.5 MG
     Route: 048
     Dates: start: 20110101
  4. DIPHENOXYLATE [Concomitant]
     Indication: DIARRHOEA
  5. VITAMINS (NOS) [Concomitant]
  6. ASPIRIN [Concomitant]
     Dosage: 81 MG
     Route: 048

REACTIONS (1)
  - SUDDEN HEARING LOSS [None]
